FAERS Safety Report 5368892-X (Version None)
Quarter: 2007Q2

REPORT INFORMATION
  Report Type: 
  Country: None (occurrence: None)
  Receive Date: 20070625
  Receipt Date: 20061106
  Transmission Date: 20071010
  Serious: Yes (Hospitalization)
  Sender: FDA-Public Use
  Company Number: US-ASTRAZENECA-2006UW22475

PATIENT
  Age: 58 Year
  Sex: Female
  Weight: 88.6 kg

DRUGS (12)
  1. ROSUVASTATIN [Suspect]
     Indication: DYSLIPIDAEMIA
     Route: 048
     Dates: start: 20060722
  2. ROSUVASTATIN [Suspect]
     Route: 048
     Dates: start: 20060920
  3. ABT-335 [Suspect]
     Indication: DYSLIPIDAEMIA
     Route: 048
     Dates: start: 20060722
  4. ABT-335 [Suspect]
     Dates: start: 20060920
  5. LEVOTHYROXINE SODIUM [Concomitant]
     Indication: HYPOTHYROIDISM
     Dates: start: 19950101
  6. ASPIRIN [Concomitant]
     Indication: CORONARY ARTERY DISEASE
     Dates: start: 20030317
  7. ASPIRIN [Concomitant]
     Indication: PROPHYLAXIS
     Dates: start: 20030317
  8. TOCOPHEROL CONCENTRATE CAP [Concomitant]
     Indication: MEDICAL DIET
     Dates: start: 20060501
  9. OESTRANORM [Concomitant]
     Indication: HORMONE REPLACEMENT THERAPY
     Dates: start: 20050501
  10. CYMBALTA [Concomitant]
     Indication: DEPRESSION
     Dates: start: 20050925
  11. DYAZIDE [Concomitant]
     Indication: HYPERTENSION
     Dates: start: 20051103
  12. VITAMIN CAP [Concomitant]
     Indication: MEDICAL DIET
     Dates: start: 19950101

REACTIONS (1)
  - PNEUMONIA [None]
